FAERS Safety Report 9878131 (Version 5)
Quarter: 2014Q2

REPORT INFORMATION
  Report Type: Spontaneous
  Country: US (occurrence: US)
  Receive Date: 20140206
  Receipt Date: 20140509
  Transmission Date: 20141212
  Serious: No
  Sender: FDA-Public Use
  Company Number: US-PFIZER INC-2014033323

PATIENT
  Age: 69 Year
  Sex: Female
  Weight: 54.42 kg

DRUGS (6)
  1. EFFEXOR [Suspect]
     Indication: ANXIETY
     Dosage: 225 MG (ONE 150MG AND ONE 75MG CAPSULE TOGETHER), 1X/DAY
     Route: 048
  2. EFFEXOR [Suspect]
     Dosage: 150 MG, 1X/DAY
     Route: 048
  3. EFFEXOR [Suspect]
     Dosage: UNK
  4. EFFEXOR XR [Suspect]
     Dosage: 150 MG, 1X/DAY
     Route: 048
  5. HYDROCHLOROTHIAZIDE [Concomitant]
     Indication: HYPERTENSION
     Dosage: UNK
  6. TEMAZEPAM [Concomitant]
     Indication: INSOMNIA
     Dosage: 15 MG, 1X/DAY AT BEDTIME

REACTIONS (3)
  - Nasopharyngitis [Recovered/Resolved]
  - Sinus disorder [Unknown]
  - Headache [Recovered/Resolved]
